FAERS Safety Report 21892173 (Version 1)
Quarter: 2023Q1

REPORT INFORMATION
  Report Type: Report from Study
  Country: US (occurrence: US)
  Receive Date: 20230120
  Receipt Date: 20230120
  Transmission Date: 20230418
  Serious: Yes (Other)
  Sender: FDA-Public Use
  Company Number: US-JAZZ-2022-US-036186

PATIENT
  Age: 38 Year
  Sex: Female

DRUGS (10)
  1. XYREM [Suspect]
     Active Substance: SODIUM OXYBATE
     Indication: Narcolepsy
     Dosage: 4.5 GRAM, BID
  2. XYREM [Suspect]
     Active Substance: SODIUM OXYBATE
     Indication: Cataplexy
  3. XYREM [Suspect]
     Active Substance: SODIUM OXYBATE
     Indication: Somnolence
  4. DAPSONE [Suspect]
     Active Substance: DAPSONE
     Indication: Product used for unknown indication
  5. SYNTHROID [Concomitant]
     Active Substance: LEVOTHYROXINE SODIUM
     Dosage: 0010
     Dates: start: 20110801
  6. OMEPRAZOLE [Concomitant]
     Active Substance: OMEPRAZOLE
     Dosage: 0000
     Dates: start: 20200501
  7. ZINC GLUCONATE [Concomitant]
     Active Substance: ZINC GLUCONATE
     Dosage: 0000
     Dates: start: 20200801
  8. VITAMIN D3 [Concomitant]
     Active Substance: CHOLECALCIFEROL
     Dosage: SOFTGEL
     Dates: start: 20200811
  9. PROPRANOLOL [Concomitant]
     Active Substance: PROPRANOLOL HYDROCHLORIDE
     Dosage: 0000
     Dates: start: 20200501
  10. OTEZLA [Concomitant]
     Active Substance: APREMILAST
     Dosage: 28 DAY STARTER PACK
     Dates: start: 20221123

REACTIONS (8)
  - Behcet^s syndrome [Unknown]
  - Fluid retention [Unknown]
  - Drug hypersensitivity [Unknown]
  - Rash [Unknown]
  - Palpitations [Unknown]
  - Influenza like illness [Unknown]
  - Intentional dose omission [Unknown]
  - Intentional product use issue [Unknown]

NARRATIVE: CASE EVENT DATE: 20221108
